FAERS Safety Report 4770207-2 (Version None)
Quarter: 2005Q3

REPORT INFORMATION
  Report Type: 
  Country: None (occurrence: None)
  Receive Date: 20050915
  Receipt Date: 20050907
  Transmission Date: 20060218
  Serious: Yes (Death)
  Sender: FDA-Public Use
  Company Number: FR-JNJFOC-20050701525

PATIENT
  Sex: Male

DRUGS (2)
  1. RISPERDAL [Suspect]
     Indication: VASCULAR DEMENTIA
     Route: 048
  2. PYOSTACINE [Concomitant]

REACTIONS (2)
  - ACUTE PULMONARY OEDEMA [None]
  - RASH ERYTHEMATOUS [None]
